FAERS Safety Report 4682341-6 (Version None)
Quarter: 2005Q2

REPORT INFORMATION
  Report Type: 
  Country: None (occurrence: None)
  Receive Date: 20050601
  Receipt Date: 20050517
  Transmission Date: 20051028
  Serious: Yes (Hospitalization)
  Sender: FDA-Public Use
  Company Number: 2005-128504-NL

PATIENT
  Age: 72 Year
  Sex: Male

DRUGS (3)
  1. TICE BCG [Suspect]
     Indication: BLADDER CANCER
     Dosage: SEE IMAGE
     Route: 043
     Dates: end: 20040101
  2. TICE BCG [Suspect]
     Indication: BLADDER CANCER
     Dosage: SEE IMAGE
     Route: 043
     Dates: end: 20040701
  3. TICE BCG [Suspect]
     Indication: BLADDER CANCER
     Dosage: SEE IMAGE
     Route: 043
     Dates: start: 20030101

REACTIONS (9)
  - CONFUSIONAL STATE [None]
  - DRUG INEFFECTIVE [None]
  - GENERAL PHYSICAL HEALTH DETERIORATION [None]
  - GRANULOMATOUS LIVER DISEASE [None]
  - MALAISE [None]
  - RENAL FAILURE ACUTE [None]
  - RENAL IMPAIRMENT [None]
  - TUBULOINTERSTITIAL NEPHRITIS [None]
  - URINARY TRACT INFECTION [None]
